FAERS Safety Report 13981983 (Version 1)
Quarter: 2017Q3

REPORT INFORMATION
  Report Type: Spontaneous
  Country: US (occurrence: None)
  Receive Date: 20170915
  Receipt Date: 20170915
  Transmission Date: 20171128
  Serious: Yes (Hospitalization)
  Sender: FDA-Public Use
  Company Number: None

PATIENT
  Age: 83 Year
  Sex: Female

DRUGS (12)
  1. DIGOXIN. [Concomitant]
     Active Substance: DIGOXIN
  2. REVATIO [Concomitant]
     Active Substance: SILDENAFIL CITRATE
  3. DILTIAZEM. [Concomitant]
     Active Substance: DILTIAZEM
  4. FUROSEMIDE. [Concomitant]
     Active Substance: FUROSEMIDE
  5. ALBUTEROL. [Concomitant]
     Active Substance: ALBUTEROL
  6. RANITINE [Concomitant]
  7. ELIQUIS [Concomitant]
     Active Substance: APIXABAN
  8. SPIRONOLACTONE. [Concomitant]
     Active Substance: SPIRONOLACTONE
  9. TRACLEER [Suspect]
     Active Substance: BOSENTAN
     Indication: PULMONARY ARTERIAL HYPERTENSION
     Route: 048
     Dates: start: 201501
  10. TRIAMCINOLONE [Concomitant]
     Active Substance: TRIAMCINOLONE
  11. QUESTRAN [Concomitant]
     Active Substance: CHOLESTYRAMINE
  12. RESTASIS [Concomitant]
     Active Substance: CYCLOSPORINE

REACTIONS (3)
  - Deep vein thrombosis [None]
  - Pruritus [None]
  - Pulmonary embolism [None]

NARRATIVE: CASE EVENT DATE: 20170903
